FAERS Safety Report 7621496-8 (Version None)
Quarter: 2011Q3

REPORT INFORMATION
  Report Type: 
  Country: None (occurrence: None)
  Receive Date: 20110719
  Receipt Date: 20110714
  Transmission Date: 20111222
  Serious: Yes (Life-Threatening, Hospitalization, Disabling)
  Sender: FDA-Public Use
  Company Number: US-CELGENEUS-163-21660-11062409

PATIENT
  Sex: Female
  Weight: 52.664 kg

DRUGS (6)
  1. ABRAXANE [Suspect]
     Dosage: 146 MILLIGRAM
     Route: 051
     Dates: start: 20110301, end: 20110603
  2. ADENOSINE [Concomitant]
     Route: 065
  3. ABRAXANE [Suspect]
     Indication: BREAST CANCER
     Dosage: 154 MILLIGRAM
     Route: 051
     Dates: start: 20110325, end: 20110301
  4. CARBOPLATIN [Suspect]
     Indication: BREAST CANCER
     Dosage: 553MG, 510MG, 509MG, 509MG
     Route: 051
     Dates: start: 20110325, end: 20110527
  5. HERCEPTIN [Suspect]
     Indication: BREAST CANCER
     Dosage: 118 MILLIGRAM
     Route: 051
     Dates: start: 20110325, end: 20110301
  6. HERCEPTIN [Suspect]
     Dosage: 105 MILLIGRAM
     Route: 051
     Dates: start: 20110301, end: 20110603

REACTIONS (12)
  - SEPTIC SHOCK [None]
  - ACUTE RESPIRATORY DISTRESS SYNDROME [None]
  - THROMBOCYTOPENIA [None]
  - HYPOKALAEMIA [None]
  - ANAEMIA [None]
  - HYPOTENSION [None]
  - NEUTROPENIA [None]
  - HYPERBILIRUBINAEMIA [None]
  - RENAL FAILURE ACUTE [None]
  - TACHYCARDIA [None]
  - HYPOCALCAEMIA [None]
  - PYREXIA [None]
